FAERS Safety Report 5005640-7 (Version None)
Quarter: 2006Q2

REPORT INFORMATION
  Report Type: 
  Country: None (occurrence: None)
  Receive Date: 20060517
  Receipt Date: 20060517
  Transmission Date: 20061013
  Serious: No
  Sender: FDA-Public Use
  Company Number: None

PATIENT
  Age: 56 Year

DRUGS (2)
  1. DILTIAZEM [Suspect]
     Indication: HYPERTENSION
  2. FUROSEMIDE [Suspect]
     Indication: HYPERTENSION

REACTIONS (1)
  - HYPOTENSION [None]
